FAERS Safety Report 23680333 (Version 2)
Quarter: 2024Q2

REPORT INFORMATION
  Report Type: Report from Study
  Country: FR (occurrence: FR)
  Receive Date: 20240328
  Receipt Date: 20240410
  Transmission Date: 20240716
  Serious: Yes (Death, Other)
  Sender: FDA-Public Use
  Company Number: FR-SUN PHARMACEUTICAL INDUSTRIES LTD-2024R1-435711

PATIENT
  Sex: Male

DRUGS (1)
  1. AZACITIDINE [Suspect]
     Active Substance: AZACITIDINE
     Indication: VEXAS syndrome
     Dosage: UNK
     Route: 065

REACTIONS (1)
  - COVID-19 [Fatal]
